FAERS Safety Report 23501031 (Version 3)
Quarter: 2025Q1

REPORT INFORMATION
  Report Type: Spontaneous
  Country: JP (occurrence: JP)
  Receive Date: 20240208
  Receipt Date: 20250121
  Transmission Date: 20250408
  Serious: Yes (Death, Disabling, Other)
  Sender: RECORDATI
  Company Number: JP-RECORDATI RARE DISEASE INC.-2023004865

PATIENT

DRUGS (9)
  1. NEOPROFEN [Suspect]
     Active Substance: IBUPROFEN LYSINE
     Indication: Patent ductus arteriosus
     Route: 042
     Dates: start: 20190526, end: 20190526
  2. NEOPROFEN [Suspect]
     Active Substance: IBUPROFEN LYSINE
     Route: 042
     Dates: start: 20190527, end: 20190527
  3. NEOPROFEN [Suspect]
     Active Substance: IBUPROFEN LYSINE
     Route: 042
     Dates: start: 20190528, end: 20190528
  4. DOPAMINE HYDROCHLORIDE [Concomitant]
     Active Substance: DOPAMINE HYDROCHLORIDE
     Indication: Hypotension
     Route: 042
     Dates: start: 20190526, end: 20190707
  5. CEFAZOLIN [Concomitant]
     Active Substance: CEFAZOLIN
     Indication: Infection
     Route: 042
     Dates: start: 20190526, end: 20190528
  6. FOSFLUCONAZOLE [Concomitant]
     Active Substance: FOSFLUCONAZOLE
     Indication: Infection
     Route: 042
     Dates: start: 20190526, end: 20190526
  7. GENTAMICIN [Concomitant]
     Active Substance: GENTAMICIN
     Indication: Infection
     Route: 042
     Dates: start: 20190526, end: 20190527
  8. FACTOR XIII CONCENTRATE (HUMAN) [Concomitant]
     Active Substance: FACTOR XIII CONCENTRATE (HUMAN)
     Indication: Haemorrhage
     Route: 042
     Dates: start: 20190526, end: 20190526
  9. SURFACTEN [Concomitant]
     Indication: Neonatal respiratory distress syndrome
     Dates: start: 20190526, end: 20190526

REACTIONS (5)
  - Infection [Fatal]
  - Cardiac failure acute [Fatal]
  - Intraventricular haemorrhage [Not Recovered/Not Resolved]
  - Necrotising colitis [Not Recovered/Not Resolved]
  - Urine output decreased [Not Recovered/Not Resolved]

NARRATIVE: CASE EVENT DATE: 20190605
